FAERS Safety Report 11463943 (Version 1)
Quarter: 2015Q3

REPORT INFORMATION
  Report Type: Spontaneous
  Country: US (occurrence: US)
  Receive Date: 20150831
  Receipt Date: 20150831
  Transmission Date: 20151125
  Serious: No
  Sender: FDA-Public Use
  Company Number: US-ELI_LILLY_AND_COMPANY-US201105005211

PATIENT
  Age: 68 Year
  Sex: Female

DRUGS (1)
  1. CYMBALTA [Suspect]
     Active Substance: DULOXETINE HYDROCHLORIDE
     Indication: MUSCULOSKELETAL PAIN
     Dosage: 30 MG, QD

REACTIONS (10)
  - Visual impairment [Unknown]
  - Intraocular pressure increased [Unknown]
  - Muscle spasms [Unknown]
  - Nausea [Unknown]
  - Feeling abnormal [Unknown]
  - Insomnia [Unknown]
  - Dry mouth [Unknown]
  - Muscular weakness [Unknown]
  - Bone pain [Unknown]
  - Abdominal pain upper [Unknown]

NARRATIVE: CASE EVENT DATE: 20110516
